FAERS Safety Report 8909781 (Version 2)
Quarter: 2012Q4

REPORT INFORMATION
  Report Type: 
  Country: JP (occurrence: JP)
  Receive Date: 20121115
  Receipt Date: 20121219
  Transmission Date: 20130627
  Serious: Yes (Other)
  Sender: FDA-Public Use
  Company Number: JP-PFIZER INC-2012285742

PATIENT
  Age: 73 Year
  Sex: Female
  Weight: 55 kg

DRUGS (7)
  1. LYRICA [Suspect]
     Indication: PAIN
     Dosage: 25 mg, 2x/day
     Route: 048
     Dates: start: 20121106, end: 20121109
  2. LYRICA [Suspect]
     Indication: LUMBAR SPINAL STENOSIS
  3. METHYCOBAL [Concomitant]
     Indication: CARPAL TUNNEL SYNDROME
     Dosage: UNK
     Route: 048
     Dates: start: 20100201
  4. JUVELA [Concomitant]
     Indication: CARPAL TUNNEL SYNDROME
     Dosage: UNK
     Route: 048
     Dates: start: 20101209, end: 20121023
  5. NORVASC [Concomitant]
     Indication: HYPERTENSION
     Dosage: 2.5 mg, 2x/day
     Route: 048
  6. OMEPRAL [Concomitant]
     Indication: REFLUX OESOPHAGITIS
     Dosage: 20 mg, 1x/day
     Route: 048
  7. LANDSEN [Concomitant]
     Indication: EPILEPSY
     Dosage: 0.5 mg, 1x/day
     Route: 048

REACTIONS (3)
  - Road traffic accident [Recovered/Resolved]
  - Feeling abnormal [Recovered/Resolved]
  - Somnolence [Recovered/Resolved]
